FAERS Safety Report 6957566-7 (Version None)
Quarter: 2010Q3

REPORT INFORMATION
  Report Type: 
  Country: None (occurrence: None)
  Receive Date: 20100831
  Receipt Date: 20100823
  Transmission Date: 20110219
  Serious: Yes (Death, Hospitalization)
  Sender: FDA-Public Use
  Company Number: ES-NOVOPROD-313676

PATIENT
  Age: 52 Year
  Sex: Male

DRUGS (6)
  1. ACTRAPID [Suspect]
     Indication: DIABETIC KETOACIDOSIS
     Dates: start: 20091124, end: 20091125
  2. POTASSIUM [Concomitant]
     Dosage: UNK
     Route: 042
     Dates: start: 20091124, end: 20091125
  3. SODIUM BICARBONATE [Concomitant]
     Dosage: UNK
     Route: 042
     Dates: start: 20091124, end: 20091125
  4. PANTOPRAZOLE [Concomitant]
     Dosage: 40 MG
     Route: 042
     Dates: start: 20091124, end: 20091125
  5. URBASON                            /00049601/ [Concomitant]
     Dosage: 80 MG, QD
     Route: 042
     Dates: start: 20091124, end: 20091125
  6. VENTOLIN [Concomitant]
     Dosage: UNK
     Route: 055
     Dates: start: 20091124, end: 20091125

REACTIONS (2)
  - CARDIO-RESPIRATORY ARREST [None]
  - HYPOKALAEMIA [None]
